FAERS Safety Report 8511279-9 (Version None)
Quarter: 2012Q3

REPORT INFORMATION
  Report Type: 
  Country: None (occurrence: None)
  Receive Date: 20120716
  Receipt Date: 20120711
  Transmission Date: 20120928
  Serious: Yes (Hospitalization)
  Sender: FDA-Public Use
  Company Number: US-SANOFI-AVENTIS-2012SA049628

PATIENT
  Age: 60 Year
  Sex: Male

DRUGS (4)
  1. LANTUS [Suspect]
     Dosage: DOSE:10 UNIT(S)
     Route: 058
     Dates: start: 20120625
  2. LANTUS [Suspect]
     Dosage: DOSE:10 UNIT(S)
     Route: 058
     Dates: start: 20120625
  3. LANTUS [Suspect]
     Dosage: TITRATING THE DOSE UPWARDS BY 2 UNITS A DAY
     Route: 058
     Dates: start: 20120601
  4. LANTUS [Suspect]
     Dosage: TITRATING THE DOSE UPWARDS BY 2 UNITS A DAY
     Route: 058
     Dates: start: 20120601

REACTIONS (6)
  - GLYCOSYLATED HAEMOGLOBIN INCREASED [None]
  - RENAL DISORDER [None]
  - COUGH [None]
  - HYPERGLYCAEMIA [None]
  - OEDEMA PERIPHERAL [None]
  - CARDIAC DISORDER [None]
